FAERS Safety Report 8582458-X (Version None)
Quarter: 2012Q3

REPORT INFORMATION
  Report Type: 
  Country: None (occurrence: None)
  Receive Date: 20120727
  Receipt Date: 20120716
  Transmission Date: 20120928
  Serious: Yes (Other)
  Sender: FDA-Public Use
  Company Number: 2012P1049936

PATIENT
  Age: 28 Year
  Sex: Female

DRUGS (1)
  1. CEFTRIAXONE [Suspect]
     Dosage: 4 GM;QD;IV
     Route: 042

REACTIONS (5)
  - URETERAL DISORDER [None]
  - FLANK PAIN [None]
  - HYDRONEPHROSIS [None]
  - ANURIA [None]
  - CALCULUS URETERIC [None]
